FAERS Safety Report 24698484 (Version 1)
Quarter: 2024Q4

REPORT INFORMATION
  Report Type: Spontaneous
  Country: US (occurrence: US)
  Receive Date: 20241204
  Receipt Date: 20241204
  Transmission Date: 20250115
  Serious: No
  Sender: AMGEN
  Company Number: US-AMGEN-USASP2024236713

PATIENT
  Sex: Male

DRUGS (2)
  1. PROCYSBI [Suspect]
     Active Substance: CYSTEAMINE BITARTRATE
     Indication: Cystinosis
     Dosage: 1050 MILLIGRAM, BID (TAKE (PROCYSBI 75 MG CAP) 14 CAPSULES)
     Route: 048
  2. PROCYSBI [Suspect]
     Active Substance: CYSTEAMINE BITARTRATE
     Dosage: 9 DOSAGE FORM, BID (9 CAPS TWICE DAILY AND HAS BEEN INCREASING DOSE EVERY TWO WEEKS TO A MONTH)
     Route: 048

REACTIONS (1)
  - Malaise [Unknown]
